FAERS Safety Report 4328186-8 (Version None)
Quarter: 2004Q1

REPORT INFORMATION
  Report Type: 
  Country: None (occurrence: None)
  Receive Date: 20040331
  Receipt Date: 20040325
  Transmission Date: 20041129
  Serious: Yes (Other)
  Sender: FDA-Public Use
  Company Number: US-GLAXOSMITHKLINE-A0504844A

PATIENT
  Age: 17 Year
  Sex: Female

DRUGS (6)
  1. ZOFRAN [Suspect]
     Indication: NAUSEA
     Dosage: 8MG SINGLE DOSE
     Route: 048
     Dates: start: 20040324, end: 20040324
  2. CYTOXAN [Concomitant]
     Indication: CHEMOTHERAPY
  3. DACTINOMYCIN [Concomitant]
     Indication: CHEMOTHERAPY
  4. VINCRISTINE [Concomitant]
     Indication: CHEMOTHERAPY
  5. COMPAZINE [Concomitant]
     Indication: DRUG USE FOR UNKNOWN INDICATION
  6. DEXAMETHASONE [Concomitant]
     Indication: DRUG USE FOR UNKNOWN INDICATION

REACTIONS (2)
  - ANGIONEUROTIC OEDEMA [None]
  - LARYNGOSPASM [None]
